FAERS Safety Report 9988904 (Version 2)
Quarter: 2014Q1

REPORT INFORMATION
  Report Type: Report from Study
  Country: US (occurrence: US)
  Receive Date: 20140310
  Receipt Date: 20140310
  Transmission Date: 20141002
  Serious: No
  Sender: FDA-Public Use
  Company Number: US-ABBVIE-13P-163-1120712-00

PATIENT
  Age: 54 Year
  Sex: Female

DRUGS (23)
  1. HUMIRA [Suspect]
     Indication: CROHN^S DISEASE
     Dosage: LOADING DOSE
     Dates: start: 20130705
  2. HUMIRA [Suspect]
     Dosage: LOADING DOSE
  3. LANSOPRAZOLE [Concomitant]
     Indication: GASTROOESOPHAGEAL REFLUX DISEASE
  4. DICYCLOMINE [Concomitant]
     Indication: CROHN^S DISEASE
  5. POLYETHYLENE GLYCOL [Concomitant]
     Indication: CROHN^S DISEASE
     Dosage: 3/350MG DAILY
  6. MERCAPTOPURINE [Concomitant]
     Indication: CROHN^S DISEASE
  7. LISINOPRIL [Concomitant]
     Indication: HYPERTENSION
  8. PREDNISONE [Concomitant]
     Indication: CROHN^S DISEASE
  9. PREDNISONE [Concomitant]
  10. PREDNISONE [Concomitant]
     Dates: start: 20130809
  11. TRADJENTA [Concomitant]
     Indication: DIABETES MELLITUS
  12. TRAMADOL [Concomitant]
     Indication: INFLAMMATION
  13. NASONEX [Concomitant]
     Indication: ASTHMA
     Dosage: DAILY
  14. ZYRTEC [Concomitant]
     Indication: ASTHMA
     Dosage: DAILY
  15. XALATAN [Concomitant]
     Indication: GLAUCOMA
     Dosage: 1 DROP BOTH EYES
     Route: 047
  16. COD LIVER OIL [Concomitant]
     Indication: SUPPLEMENTATION THERAPY
  17. CENTRUM SILVER [Concomitant]
     Indication: VITAMIN SUPPLEMENTATION
  18. B12 [Concomitant]
     Indication: VITAMIN SUPPLEMENTATION
  19. CITRUCEL [Concomitant]
     Indication: SUPPLEMENTATION THERAPY
  20. IRON [Concomitant]
     Indication: MINERAL SUPPLEMENTATION
  21. PROVENTIL [Concomitant]
     Indication: ASTHMA
     Dosage: DAILY
  22. LEVSIN [Concomitant]
     Indication: MUSCLE SPASMS
     Dosage: EVERY 4 HOURS
  23. LEVSIN [Concomitant]
     Indication: PAIN

REACTIONS (4)
  - Muscle spasms [Not Recovered/Not Resolved]
  - Diarrhoea [Recovered/Resolved]
  - Diarrhoea [Recovering/Resolving]
  - Abdominal pain [Recovering/Resolving]
